FAERS Safety Report 22213534 (Version 1)
Quarter: 2023Q2

REPORT INFORMATION
  Report Type: Report from Study
  Country: US (occurrence: None)
  Receive Date: 20230414
  Receipt Date: 20230414
  Transmission Date: 20230721
  Serious: Yes (Death, Hospitalization)
  Sender: FDA-Public Use
  Company Number: US-Eisai Medical Research-EC-2023-138321

PATIENT
  Age: 58 Year
  Sex: Male
  Weight: 78.4 kg

DRUGS (18)
  1. LENVIMA [Suspect]
     Active Substance: LENVATINIB
     Indication: Thyroid cancer
     Route: 048
     Dates: start: 20220702, end: 20220729
  2. LENVIMA [Suspect]
     Active Substance: LENVATINIB
     Indication: Metastases to bone
     Dosage: ALTERNATING 24MG AND 14MG
     Route: 048
     Dates: start: 20220801, end: 202208
  3. LENVIMA [Suspect]
     Active Substance: LENVATINIB
     Indication: Metastases to lung
     Dosage: SKIP TAKING ON WEEKENDS
     Route: 048
     Dates: start: 202208, end: 202211
  4. LENVIMA [Suspect]
     Active Substance: LENVATINIB
     Route: 048
  5. LENVIMA [Suspect]
     Active Substance: LENVATINIB
     Route: 048
     Dates: end: 20230307
  6. MELOXICAM [Concomitant]
     Active Substance: MELOXICAM
     Indication: Product used for unknown indication
     Dosage: FREQUENCY AND DOSAGE UNKNOWN
  7. ADVIL [Concomitant]
     Active Substance: IBUPROFEN
  8. ATORVASTATIN CALCIUM [Concomitant]
     Active Substance: ATORVASTATIN CALCIUM
  9. METHOCARBAMOL [Concomitant]
     Active Substance: METHOCARBAMOL
  10. ONDANSETRON HYDROCHLORIDE [Concomitant]
     Active Substance: ONDANSETRON HYDROCHLORIDE
  11. OXYCODONE HYDROCHLORIDE [Concomitant]
     Active Substance: OXYCODONE HYDROCHLORIDE
  12. PROTONIX [Concomitant]
     Active Substance: PANTOPRAZOLE SODIUM
  13. PROCHLORPERAZINE MALEATE [Concomitant]
     Active Substance: PROCHLORPERAZINE MALEATE
  14. LEVOTHYROXINE SODIUM [Concomitant]
     Active Substance: LEVOTHYROXINE SODIUM
  15. COMPAZINE [Concomitant]
     Active Substance: PROCHLORPERAZINE MALEATE
  16. DEXAMETHASONE [Concomitant]
     Active Substance: DEXAMETHASONE
  17. ELIQUIS [Concomitant]
     Active Substance: APIXABAN
  18. GABAPENTIN [Concomitant]
     Active Substance: GABAPENTIN

REACTIONS (2)
  - Diverticulitis intestinal perforated [Fatal]
  - Sepsis [Fatal]

NARRATIVE: CASE EVENT DATE: 20230307
